FAERS Safety Report 7284966-0 (Version None)
Quarter: 2011Q1

REPORT INFORMATION
  Report Type: 
  Country: None (occurrence: None)
  Receive Date: 20110204
  Receipt Date: 20110204
  Transmission Date: 20110831
  Serious: Yes (Life-Threatening)
  Sender: FDA-Public Use
  Company Number: None

PATIENT
  Age: 37 Year
  Sex: Male
  Weight: 58.0604 kg

DRUGS (1)
  1. DYCICLOMINE GENERIC FOR BENTIL 20MG WATSON LABS DICYCLOMINE [Suspect]
     Indication: GASTROENTERITIS
     Dosage: 20 MG 1 TABLET EVERY 4 HOURS
     Dates: start: 20110123, end: 20110124

REACTIONS (4)
  - VOMITING [None]
  - MALAISE [None]
  - INJURY [None]
  - CONFUSIONAL STATE [None]
